FAERS Safety Report 8233943-1 (Version None)
Quarter: 2012Q1

REPORT INFORMATION
  Report Type: 
  Country: None (occurrence: None)
  Receive Date: 20120326
  Receipt Date: 20120322
  Transmission Date: 20120608
  Serious: Yes (Death, Hospitalization, Other)
  Sender: FDA-Public Use
  Company Number: AU-B.I. PHARMACEUTICALS,INC./RIDGEFIELD-2012-AU-00624AU

PATIENT
  Age: 83 Year
  Sex: Male

DRUGS (1)
  1. PRADAXA [Suspect]

REACTIONS (5)
  - PYREXIA [None]
  - SEPSIS [None]
  - MALAISE [None]
  - WOUND INFECTION [None]
  - MYOCARDIAL INFARCTION [None]
